FAERS Safety Report 10881422 (Version 2)
Quarter: 2015Q1

REPORT INFORMATION
  Report Type: Report from Study
  Country: GR (occurrence: GR)
  Receive Date: 20150303
  Receipt Date: 20150315
  Transmission Date: 20150721
  Serious: Yes (Death, Life-Threatening)
  Sender: FDA-Public Use
  Company Number: GR-TEVA-544605ISR

PATIENT

DRUGS (3)
  1. BEVACIZUMAB [Suspect]
     Active Substance: BEVACIZUMAB
     Indication: NON-SMALL CELL LUNG CANCER METASTATIC
     Dosage: 15 MG/KG DAILY; DAY 1, 6 CYCLES, EVERY 3 WEEKS
  2. DOCETAXEL. [Suspect]
     Active Substance: DOCETAXEL
     Indication: NON-SMALL CELL LUNG CANCER METASTATIC
     Dosage: 75 MG/M2 DAILY; DAY 1, 6 CYCLES, EVERY 3 WEEKS
  3. CISPLATIN. [Suspect]
     Active Substance: CISPLATIN
     Indication: NON-SMALL CELL LUNG CANCER METASTATIC
     Dosage: 80 MG/M2 DAILY; DAY 1, 6 CYCLES, EVERY 3 WEEKS

REACTIONS (3)
  - Death [Fatal]
  - Sepsis [Fatal]
  - Febrile neutropenia [Not Recovered/Not Resolved]
